FAERS Safety Report 8440504-8 (Version None)
Quarter: 2012Q2

REPORT INFORMATION
  Report Type: 
  Country: None (occurrence: None)
  Receive Date: 20120615
  Receipt Date: 20120611
  Transmission Date: 20120825
  Serious: Yes (Hospitalization)
  Sender: FDA-Public Use
  Company Number: US-GILEAD-2012-0056477

PATIENT
  Sex: Female

DRUGS (2)
  1. LASIX [Suspect]
  2. LETAIRIS [Suspect]
     Indication: PRODUCT USED FOR UNKNOWN INDICATION
     Dosage: 10 MG, UNK
     Route: 048

REACTIONS (5)
  - DEHYDRATION [None]
  - SYNCOPE [None]
  - CATHETER SITE INFECTION [None]
  - PYREXIA [None]
  - PNEUMONIA [None]
